FAERS Safety Report 12188852 (Version 1)
Quarter: 2016Q1

REPORT INFORMATION
  Report Type: Spontaneous
  Country: US (occurrence: US)
  Receive Date: 20160317
  Receipt Date: 20160317
  Transmission Date: 20160526
  Serious: Yes (Other)
  Sender: FDA-Public Use
  Company Number: US-TEVA-642761USA

PATIENT
  Age: 77 Year
  Sex: Male
  Weight: 77.18 kg

DRUGS (5)
  1. TRISENOX [Suspect]
     Active Substance: ARSENIC TRIOXIDE
     Indication: ACUTE PROMYELOCYTIC LEUKAEMIA
     Route: 065
     Dates: start: 20160301
  2. VANCOMYCIN [Concomitant]
     Active Substance: VANCOMYCIN
  3. ALLOPURINOL. [Concomitant]
     Active Substance: ALLOPURINOL
  4. CEFEPIME [Concomitant]
     Active Substance: CEFEPIME HYDROCHLORIDE
  5. ALL-TRANS RETINOIC ACID [Concomitant]
     Active Substance: TRETINOIN

REACTIONS (5)
  - Mental disorder due to a general medical condition [Unknown]
  - Aphasia [Unknown]
  - Speech disorder [Unknown]
  - Acute promyelocytic leukaemia differentiation syndrome [Unknown]
  - Hepatic enzyme abnormal [Unknown]

NARRATIVE: CASE EVENT DATE: 20160306
